FAERS Safety Report 10257585 (Version 1)
Quarter: 2014Q2

REPORT INFORMATION
  Report Type: Spontaneous
  Country: CA (occurrence: CA)
  Receive Date: 20140625
  Receipt Date: 20140625
  Transmission Date: 20141212
  Serious: Yes (Other)
  Sender: FDA-Public Use
  Company Number: CA-CELGENEUS-028-21880-14062794

PATIENT
  Age: 70 Year
  Sex: Female

DRUGS (16)
  1. REVLIMID [Suspect]
     Indication: PLASMA CELL MYELOMA
     Route: 048
     Dates: start: 20120816, end: 201404
  2. REVLIMID [Suspect]
     Route: 048
     Dates: start: 2014
  3. LINEZOLID [Suspect]
     Indication: MYCOBACTERIAL PERITONITIS
     Dosage: 1200 MILLIGRAM
     Route: 065
     Dates: start: 201403, end: 20140529
  4. AZITHROMYCIN [Suspect]
     Indication: MYCOBACTERIAL PERITONITIS
     Dosage: 250 MILLIGRAM
     Route: 065
     Dates: start: 201402
  5. CEFOXITIN [Suspect]
     Indication: MYCOBACTERIAL PERITONITIS
     Dosage: 2 GRAM
     Route: 065
     Dates: start: 20140328, end: 20140403
  6. MOXIFLOXACIN [Suspect]
     Indication: MYCOBACTERIAL PERITONITIS
     Dosage: 400 MILLIGRAM
     Route: 065
     Dates: start: 201403
  7. TIGECYCLINE [Suspect]
     Indication: MYCOBACTERIAL PERITONITIS
     Dosage: 100 MILLIGRAM
     Route: 065
     Dates: start: 20140323, end: 20140403
  8. ALFACALCIDOL [Concomitant]
     Indication: SUPPLEMENTATION THERAPY
     Route: 065
  9. ASA [Concomitant]
     Indication: THROMBOSIS PROPHYLAXIS
     Route: 065
  10. CALCIUM CARBONATE [Concomitant]
     Indication: SUPPLEMENTATION THERAPY
     Dosage: 3750 MILLIGRAM
     Route: 065
  11. ARANESP [Concomitant]
     Indication: ANAEMIA
     Route: 065
  12. FUROSEMIDE [Concomitant]
     Indication: HYPERTENSION
     Dosage: 60 MILLIGRAM
     Route: 065
     Dates: start: 20130313
  13. PANTOPRAZOLE [Concomitant]
     Indication: PRODUCT USED FOR UNKNOWN INDICATION
     Dosage: 80 MILLIGRAM
     Route: 065
     Dates: start: 20130322
  14. REPLAVITE [Concomitant]
     Indication: SUPPLEMENTATION THERAPY
     Dosage: 1 TABLET
     Route: 048
  15. VALACYCLOVIR [Concomitant]
     Indication: HERPES VIRUS INFECTION
     Route: 065
  16. VALACYCLOVIR [Concomitant]
     Indication: SUPPLEMENTATION THERAPY

REACTIONS (4)
  - Pericarditis [Unknown]
  - Mycobacterial peritonitis [Unknown]
  - Rash maculo-papular [Recovering/Resolving]
  - Rash [Unknown]
